FAERS Safety Report 4552987-4 (Version None)
Quarter: 2005Q1

REPORT INFORMATION
  Report Type: 
  Country: None (occurrence: None)
  Receive Date: 20050113
  Receipt Date: 20041230
  Transmission Date: 20050727
  Serious: Yes (Hospitalization, Other)
  Sender: FDA-Public Use
  Company Number: USA-2003-0005819

PATIENT
  Age: 40 Year
  Sex: Male
  Weight: 68 kg

DRUGS (14)
  1. OXYCONTIN [Suspect]
     Indication: PAIN
     Dosage: 20 MG
     Dates: start: 20000401
  2. NORCO [Concomitant]
  3. HYTRIN [Concomitant]
  4. CELEBREX [Concomitant]
  5. SKELAXIN [Concomitant]
  6. VIOXX [Concomitant]
  7. PROZAC [Concomitant]
  8. DEMEROL [Concomitant]
  9. TRAZODONE (TRAZODONE) [Concomitant]
  10. CARISOPRODOL (CARISOPRODOL) [Concomitant]
  11. NAPROXEN [Concomitant]
  12. MIDRIN (ISOMETHEPTENE, DICHLORALPHENAZONE) [Concomitant]
  13. INDERAL [Concomitant]
  14. KLONOPIN [Concomitant]

REACTIONS (18)
  - ABDOMINAL PAIN [None]
  - ANXIETY [None]
  - APPENDICITIS [None]
  - ASTHENIA [None]
  - BRONCHITIS [None]
  - CRYING [None]
  - DIARRHOEA [None]
  - DRUG ABUSER [None]
  - DRUG DEPENDENCE [None]
  - DRUG SCREEN POSITIVE [None]
  - DRUG WITHDRAWAL SYNDROME [None]
  - FEELING OF DESPAIR [None]
  - INSOMNIA [None]
  - PAIN [None]
  - PANIC ATTACK [None]
  - SINUSITIS [None]
  - SOMATIC DELUSION [None]
  - SUICIDAL IDEATION [None]
